FAERS Safety Report 4558279-1 (Version None)
Quarter: 2005Q1

REPORT INFORMATION
  Report Type: 
  Country: None (occurrence: None)
  Receive Date: 20050103
  Receipt Date: 20041020
  Transmission Date: 20050727
  Serious: Yes (Other)
  Sender: FDA-Public Use
  Company Number: 2004UW21850

PATIENT
  Age: 78 Year
  Sex: Male
  Weight: 72.574 kg

DRUGS (6)
  1. CRESTOR [Suspect]
     Indication: BLOOD CHOLESTEROL INCREASED
     Dosage: 10 MG DAILY PO
     Route: 048
     Dates: start: 20040901
  2. PEPCID [Concomitant]
  3. COUMADIN [Concomitant]
  4. ASPIRIN [Concomitant]
  5. MICARDIS [Concomitant]
  6. CARDURA [Concomitant]

REACTIONS (2)
  - LIP ULCERATION [None]
  - ORAL PAIN [None]
